APPROVED DRUG PRODUCT: LIDOCAINE HYDROCHLORIDE
Active Ingredient: LIDOCAINE HYDROCHLORIDE
Strength: 1%
Dosage Form/Route: INJECTABLE;INJECTION
Application: A040013 | Product #001
Applicant: HOSPIRA WORLDWIDE, INC
Approved: Jun 23, 1995 | RLD: No | RS: No | Type: DISCN